FAERS Safety Report 6321785-3 (Version None)
Quarter: 2009Q3

REPORT INFORMATION
  Report Type: 
  Country: None (occurrence: None)
  Receive Date: 20090824
  Receipt Date: 20090814
  Transmission Date: 20100115
  Serious: Yes (Other)
  Sender: FDA-Public Use
  Company Number: US-ROCHE-650614

PATIENT
  Sex: Female

DRUGS (11)
  1. BONIVA [Suspect]
     Indication: OSTEOPOROSIS
     Dosage: SINGLE DOSE
     Route: 042
     Dates: start: 20090610, end: 20090610
  2. SYNTHROID [Concomitant]
  3. SINGULAIR [Concomitant]
  4. ELAVIL [Concomitant]
  5. PREDNISONE TAB [Concomitant]
  6. AMBIEN [Concomitant]
  7. ALLOPURINOL [Concomitant]
  8. LIDOCAINE [Concomitant]
     Dosage: AS NEEDED
  9. ALBUTEROL [Concomitant]
     Dosage: AS NEEDED
  10. BENADRYL [Concomitant]
     Dosage: AS NEEDED
  11. TYLENOL (CAPLET) [Concomitant]
     Dosage: AS NEEDED

REACTIONS (1)
  - EXOSTOSIS [None]
